FAERS Safety Report 9516746 (Version 1)
Quarter: 2013Q1

REPORT INFORMATION
  Report Type: Spontaneous
  Country: US (occurrence: None)
  Receive Date: 20130305
  Receipt Date: 20130305
  Transmission Date: 20140127
  Serious: Yes (Hospitalization)
  Sender: FDA-Public Use
  Company Number: 163-21880-12120398

PATIENT
  Age: 69 Year
  Sex: Male

DRUGS (5)
  1. REVLIMID (LENALIDOMIDE) (15 MILLIGRAM, CAPSULES) [Suspect]
     Indication: PLASMA CELL MYELOMA
     Dosage: 15 MG, 21 IN 21 D, PO
     Dates: start: 20110202
  2. ADVAIR DISKUS(SERETIDE MITE)(UNKNOWN) [Concomitant]
  3. ASPIRIN(ACETYLSALICYLIC ACID)(UNKNOWN) [Concomitant]
  4. DEXAMETHASONE(DEXAMETHASONE)(UNKNOWN) [Concomitant]
  5. OXYCODONE HCL(OXYCODONE HYDROCHLORIDE)(UNKNOWN) [Concomitant]

REACTIONS (1)
  - Pneumonia [None]
